FAERS Safety Report 20761392 (Version 3)
Quarter: 2022Q3

REPORT INFORMATION
  Report Type: Spontaneous
  Country: US (occurrence: US)
  Receive Date: 20220428
  Receipt Date: 20220823
  Transmission Date: 20221027
  Serious: No
  Sender: FDA-Public Use
  Company Number: US-PFIZER INC-202200511708

PATIENT
  Age: 14 Year
  Sex: Female
  Weight: 45.81 kg

DRUGS (2)
  1. GENOTROPIN [Suspect]
     Active Substance: SOMATROPIN
     Indication: Growth disorder
     Dosage: 1.6 DOSE UNITS NOT SPECIFIED ROUTE NOT SPECIFIED EVERY DAY IN HER BUTT
  2. GENOTROPIN [Suspect]
     Active Substance: SOMATROPIN
     Dosage: 1.8 DOSE UNITS NOT SPECIFIED ROUTE NOT SPECIFIED EVERY DAY IN HER BUTT
     Dates: start: 20201229

REACTIONS (2)
  - Device mechanical issue [Unknown]
  - Drug dose omission by device [Unknown]
